FAERS Safety Report 14433380 (Version 1)
Quarter: 2018Q1

REPORT INFORMATION
  Report Type: Spontaneous
  Country: US (occurrence: US)
  Receive Date: 20180124
  Receipt Date: 20180124
  Transmission Date: 20180509
  Serious: No
  Sender: FDA-Public Use
  Company Number: US-PCCINC-T201700370

PATIENT

DRUGS (8)
  1. LIORESAL [Concomitant]
     Active Substance: BACLOFEN
     Dosage: 934.9 MCG/DAY
     Route: 065
  2. GABLOFEN [Suspect]
     Active Substance: BACLOFEN
     Indication: MUSCLE SPASTICITY
     Dosage: 927.9 ?G, QD
     Route: 037
  3. BOTOX [Concomitant]
     Active Substance: ONABOTULINUMTOXINA
  4. LIORESAL [Concomitant]
     Active Substance: BACLOFEN
     Dosage: 1153 ?G, QD
     Route: 037
     Dates: start: 2010
  5. PERCOCET [Concomitant]
     Active Substance: ACETAMINOPHEN\OXYCODONE HYDROCHLORIDE
  6. GABLOFEN [Suspect]
     Active Substance: BACLOFEN
     Indication: SPINAL CORD INJURY
  7. LIORESAL [Concomitant]
     Active Substance: BACLOFEN
     Dosage: 499 MCG/DAY
     Route: 065
  8. LIORESAL [Concomitant]
     Active Substance: BACLOFEN
     Dosage: 1038.5 MCG/DAY

REACTIONS (10)
  - Gait disturbance [Unknown]
  - Muscular weakness [Unknown]
  - Fall [Unknown]
  - Dizziness [Unknown]
  - Nausea [Unknown]
  - Paralysis [Unknown]
  - Vomiting [Unknown]
  - Overdose [Not Recovered/Not Resolved]
  - Clonus [Unknown]
  - Amnesia [Unknown]

NARRATIVE: CASE EVENT DATE: 20161017
